FAERS Safety Report 24768696 (Version 1)
Quarter: 2024Q4

REPORT INFORMATION
  Report Type: Spontaneous
  Country: IN (occurrence: None)
  Receive Date: 20241224
  Receipt Date: 20241224
  Transmission Date: 20250114
  Serious: Yes (Other)
  Sender: INFORLIFE
  Company Number: IN-INFO-20240386

PATIENT
  Age: 80 Year
  Sex: Female

DRUGS (12)
  1. FLUCONAZOLE [Interacting]
     Active Substance: FLUCONAZOLE
     Indication: Oral candidiasis
  2. INSULIN NOS [Concomitant]
     Active Substance: INSULIN NOS
     Indication: Diabetes mellitus
  3. ETOFYLLINE\THEOPHYLLINE [Interacting]
     Active Substance: ETOFYLLINE\THEOPHYLLINE
     Indication: Pneumonia bacterial
     Dosage: ()
  4. CEFOPERAZONE\SULBACTAM [Concomitant]
     Active Substance: CEFOPERAZONE\SULBACTAM
     Indication: Pneumonia bacterial
  5. ISOSORBIDE MONONITRATE [Interacting]
     Active Substance: ISOSORBIDE MONONITRATE
     Indication: Myocardial ischaemia
  6. IVABRADINE [Interacting]
     Active Substance: IVABRADINE
     Indication: Myocardial ischaemia
  7. PANTOCID [Concomitant]
  8. CANDID MOUTH GEL [Concomitant]
     Indication: Mouth ulceration
  9. MONTAIR PLUS [Concomitant]
     Indication: Chronic obstructive pulmonary disease
     Dosage: ()
  10. CREMAFFIN SODIUM PICCOLATE [Concomitant]
     Indication: Constipation
     Dosage: ()
  11. LIVOGEN [Concomitant]
     Indication: Anaemia
     Dosage: ()
  12. DNS [Concomitant]
     Indication: Hypoglycaemia
     Dosage: ()

REACTIONS (2)
  - Drug interaction [Recovered/Resolved]
  - Oedema peripheral [Recovered/Resolved]
